FAERS Safety Report 8866466 (Version 5)
Quarter: 2013Q1

REPORT INFORMATION
  Report Type: Spontaneous
  Country: US (occurrence: US)
  Receive Date: 20121025
  Receipt Date: 20130108
  Transmission Date: 20140127
  Serious: Yes (Other)
  Sender: FDA-Public Use
  Company Number: US-PFIZER INC-2012262086

PATIENT
  Age: 66 Year
  Sex: Female
  Weight: 68.03 kg

DRUGS (17)
  1. ENBREL [Suspect]
     Indication: RHEUMATOID ARTHRITIS
     Dosage: UNK
  2. DICLOFENAC [Suspect]
     Indication: OSTEOARTHRITIS
     Dosage: 50 MG, 2X/DAY
  3. LYRICA [Suspect]
     Indication: NEURALGIA
     Dosage: 50 MG, 2X/DAY
     Route: 048
  4. LYRICA [Suspect]
     Dosage: 100 MG, 2X/DAY
     Route: 048
  5. LYRICA [Suspect]
     Dosage: 150 MG, 2X/DAY
     Route: 048
  6. LYRICA [Suspect]
     Dosage: 200 MG, 2X/DAY
     Route: 048
  7. LYRICA [Suspect]
     Dosage: 250 MG, 2X/DAY
     Route: 048
  8. LYRICA [Suspect]
     Dosage: 300 MG, 2X/DAY
     Route: 048
  9. LYRICA [Suspect]
     Dosage: 2X50MG IN MORNING AND 3X50MG AT NIGHT
     Route: 048
     Dates: end: 2012
  10. LYRICA [Suspect]
     Dosage: 300 MG, 2X/DAY
     Dates: start: 2012
  11. LYRICA [Suspect]
     Dosage: 50 MG
  12. LEVOTHYROXINE [Concomitant]
     Indication: HYPOTHYROIDISM
     Dosage: UNK
  13. LEVOTHYROXINE [Concomitant]
     Dosage: 0.88 MG, UNK
  14. REMICADE [Concomitant]
     Indication: RHEUMATOID ARTHRITIS
     Dosage: UNK,EVERY SIX WEEKS
     Route: 042
  15. NASONEX [Concomitant]
     Dosage: UNK
  16. FLUTICASONE [Concomitant]
     Dosage: UNK
  17. TEMAZEPAM [Concomitant]
     Indication: SLEEP DISORDER
     Dosage: UNK

REACTIONS (5)
  - Drug dependence [Unknown]
  - Neuralgia [Unknown]
  - Feeling abnormal [Unknown]
  - Drug ineffective [Unknown]
  - Dizziness [Unknown]
